FAERS Safety Report 4492468-X (Version None)
Quarter: 2004Q4

REPORT INFORMATION
  Report Type: 
  Country: None (occurrence: None)
  Receive Date: 20041029
  Receipt Date: 20041015
  Transmission Date: 20050328
  Serious: Yes (Hospitalization)
  Sender: FDA-Public Use
  Company Number: 176475

PATIENT
  Age: 60 Year
  Sex: Male
  Weight: 104.3273 kg

DRUGS (4)
  1. AVONEX [Suspect]
     Indication: MULTIPLE SCLEROSIS
     Dosage: 30 MCG QW IM
     Route: 030
     Dates: start: 20000101
  2. ZOLOFT [Concomitant]
  3. ZOCOR [Concomitant]
  4. DETROL [Concomitant]

REACTIONS (3)
  - CALCINOSIS [None]
  - MUSCLE SPASMS [None]
  - SPINAL COLUMN STENOSIS [None]
